FAERS Safety Report 5573223-6 (Version None)
Quarter: 2007Q4

REPORT INFORMATION
  Report Type: 
  Country: None (occurrence: None)
  Receive Date: 20071220
  Receipt Date: 20071203
  Transmission Date: 20080405
  Serious: Yes (Hospitalization, Other)
  Sender: FDA-Public Use
  Company Number: WAES0707GBR00062

PATIENT
  Age: 7 Year
  Sex: Male

DRUGS (3)
  1. INDOCIN [Suspect]
     Dosage: 25MG BID
  2. IBUPROFEN [Suspect]
  3. DICLOFENAC SODIUM [Suspect]
     Dosage: RECT
     Route: 054

REACTIONS (3)
  - DEHYDRATION [None]
  - PROCEDURAL VOMITING [None]
  - RENAL FAILURE ACUTE [None]
